FAERS Safety Report 23576097 (Version 1)
Quarter: 2024Q1

REPORT INFORMATION
  Report Type: Spontaneous
  Country: US (occurrence: None)
  Receive Date: 20240228
  Receipt Date: 20240228
  Transmission Date: 20240410
  Serious: Yes (Hospitalization)
  Sender: FDA-Public Use
  Company Number: None

PATIENT
  Sex: Female

DRUGS (4)
  1. GAMMAGARD LIQUID [Suspect]
     Active Substance: HUMAN IMMUNOGLOBULIN G
     Indication: Immunodeficiency common variable
     Dosage: 250ML EVERY WEEK IV
     Route: 042
     Dates: start: 202202
  2. GAMMAGARD LIQUID [Suspect]
     Active Substance: HUMAN IMMUNOGLOBULIN G
     Indication: Immunodeficiency common variable
     Dosage: 250ML EVERY WEEK IV
     Route: 042
     Dates: start: 202202
  3. TALTZ [Concomitant]
     Active Substance: IXEKIZUMAB
  4. DUPIXENT PEN INJECTOR (2?PKG) [Concomitant]

REACTIONS (1)
  - Respiratory syncytial virus infection [None]
